FAERS Safety Report 21915474 (Version 1)
Quarter: 2023Q1

REPORT INFORMATION
  Report Type: Spontaneous
  Country: US (occurrence: None)
  Receive Date: 20230125
  Receipt Date: 20230125
  Transmission Date: 20230417
  Serious: No
  Sender: FDA-Public Use
  Company Number: None

PATIENT
  Age: 67 Year
  Sex: Female

DRUGS (1)
  1. HYALURONATE SODIUM\SODIUM CHLORIDE [Suspect]
     Active Substance: HYALURONATE SODIUM\SODIUM CHLORIDE
     Indication: Osteoarthritis
     Dosage: FREQUENCY : ONCE;?
     Route: 014
     Dates: start: 20230120

REACTIONS (2)
  - Needle issue [None]
  - Drug dose omission by device [None]

NARRATIVE: CASE EVENT DATE: 20230120
